FAERS Safety Report 25110501 (Version 1)
Quarter: 2025Q1

REPORT INFORMATION
  Report Type: Report from Study
  Country: ZA (occurrence: ZA)
  Receive Date: 20250324
  Receipt Date: 20250324
  Transmission Date: 20250409
  Serious: Yes (Hospitalization)
  Sender: ROCHE
  Company Number: ZA-ROCHE-10000233038

PATIENT
  Sex: Female

DRUGS (2)
  1. VABYSMO [Suspect]
     Active Substance: FARICIMAB-SVOA
     Indication: Macular degeneration
     Route: 065
  2. BROLUCIZUMAB [Concomitant]
     Active Substance: BROLUCIZUMAB

REACTIONS (4)
  - Fall [Unknown]
  - Hip fracture [Unknown]
  - Off label use [Unknown]
  - Optical coherence tomography abnormal [Unknown]
